FAERS Safety Report 11924217 (Version 1)
Quarter: 2016Q1

REPORT INFORMATION
  Report Type: Spontaneous
  Country: US (occurrence: US)
  Receive Date: 20160118
  Receipt Date: 20160118
  Transmission Date: 20160526
  Serious: No
  Sender: FDA-Public Use
  Company Number: US-HORIZON-ACT-0005-2016

PATIENT
  Age: 31 Year
  Sex: Female

DRUGS (1)
  1. ACTIMMUNE [Suspect]
     Active Substance: INTERFERON GAMMA-1B
     Indication: IMMUNE SYSTEM DISORDER
     Dosage: 74 ?G THREE TIMES WEEKLY
     Dates: start: 20121016

REACTIONS (2)
  - Multiple use of single-use product [Unknown]
  - Off label use [Unknown]
